FAERS Safety Report 10709057 (Version 3)
Quarter: 2015Q2

REPORT INFORMATION
  Report Type: Spontaneous
  Country: BR (occurrence: BR)
  Receive Date: 20150114
  Receipt Date: 20150422
  Transmission Date: 20150821
  Serious: Yes (Other)
  Sender: FDA-Public Use
  Company Number: BR-ROCHE-1520836

PATIENT
  Age: 74 Year
  Sex: Male
  Weight: 77 kg

DRUGS (5)
  1. RIVOTRIL [Suspect]
     Active Substance: CLONAZEPAM
     Indication: ANXIETY
  2. PROLOPA [Suspect]
     Active Substance: BENSERAZIDE\LEVODOPA
     Indication: PARKINSON^S DISEASE
     Route: 048
     Dates: start: 2013
  3. MANTIDAN [Suspect]
     Active Substance: AMANTADINE HYDROCHLORIDE
     Indication: PARKINSON^S DISEASE
     Route: 065
  4. RIVOTRIL [Suspect]
     Active Substance: CLONAZEPAM
     Indication: INSOMNIA
     Route: 048
     Dates: start: 2014
  5. RIVOTRIL [Suspect]
     Active Substance: CLONAZEPAM
     Indication: TREMOR

REACTIONS (4)
  - Hallucination, auditory [Recovered/Resolved]
  - Cataract [Unknown]
  - Drug ineffective [Unknown]
  - Nervousness [Unknown]
